FAERS Safety Report 23904364 (Version 3)
Quarter: 2024Q2

REPORT INFORMATION
  Report Type: Spontaneous
  Country: ES (occurrence: ES)
  Receive Date: 20240527
  Receipt Date: 20240610
  Transmission Date: 20240716
  Serious: No
  Sender: FDA-Public Use
  Company Number: ES-002147023-NVSC2024ES110525

PATIENT
  Sex: Female

DRUGS (1)
  1. OFATUMUMAB [Interacting]
     Active Substance: OFATUMUMAB
     Indication: Multiple sclerosis
     Dosage: UNK
     Route: 065

REACTIONS (1)
  - Psoriasis [Unknown]
